FAERS Safety Report 5025745-4 (Version None)
Quarter: 2006Q2

REPORT INFORMATION
  Report Type: 
  Country: None (occurrence: None)
  Receive Date: 20060427
  Receipt Date: 20051111
  Transmission Date: 20061013
  Serious: Yes (Congenital Anomaly)
  Sender: FDA-Public Use
  Company Number: 2005154453

PATIENT
  Sex: Female
  Weight: 70.3075 kg

DRUGS (1)
  1. ZITHROMAX [Suspect]
     Indication: PHARYNGITIS STREPTOCOCCAL
     Dosage: ORAL
     Route: 048
     Dates: start: 20050101

REACTIONS (2)
  - OTOTOXICITY [None]
  - TINNITUS [None]
